FAERS Safety Report 9378543 (Version 4)
Quarter: 2014Q1

REPORT INFORMATION
  Report Type: Spontaneous
  Country: JP (occurrence: JP)
  Receive Date: 20130702
  Receipt Date: 20140126
  Transmission Date: 20141002
  Serious: Yes (Other)
  Sender: FDA-Public Use
  Company Number: JP-AMGEN-JPNSP2013045344

PATIENT
  Age: 70 Year
  Sex: Male

DRUGS (3)
  1. RANMARK [Suspect]
     Indication: METASTASES TO BONE
     Dosage: 120 MG, QD
     Route: 058
     Dates: start: 20121110, end: 20130501
  2. ETOPOSIDE [Concomitant]
     Dosage: 150 MG, QD
     Route: 042
     Dates: start: 20120711
  3. CISPLATIN [Concomitant]
     Indication: METASTASIS
     Dosage: 120 MG, QD
     Route: 042
     Dates: start: 20120711, end: 20130404

REACTIONS (1)
  - Osteonecrosis of jaw [Not Recovered/Not Resolved]
